FAERS Safety Report 9631263 (Version 2)
Quarter: 2013Q4

REPORT INFORMATION
  Report Type: Spontaneous
  Country: DE (occurrence: None)
  Receive Date: 20131016
  Receipt Date: 20131022
  Transmission Date: 20140711
  Serious: Yes (Hospitalization)
  Sender: FDA-Public Use
  Company Number: FK201304587

PATIENT
  Age: 63 Year
  Sex: Female
  Weight: 86 kg

DRUGS (5)
  1. CARBOPLATIN [Suspect]
     Indication: OVARIAN CANCER
     Dosage: 600 MG, INTRAVENOUS (NOT OTHERWISE SPECIFIED)?
     Route: 042
     Dates: start: 20130910, end: 20130919
  2. PACLITAXEL [Suspect]
     Indication: OVARIAN CANCER
     Route: 042
  3. DEXAMETHASONE (DEXAMETHASONE) [Concomitant]
     Indication: OVARIAN CANCER
  4. TAVEGIL (CLEMASTINE) [Concomitant]
  5. RANITIDIN (RANITIDINE HYDROCHLORIDE) [Concomitant]

REACTIONS (5)
  - Anxiety [None]
  - Erythema [None]
  - Feeling hot [None]
  - Petechiae [None]
  - Flushing [None]
